FAERS Safety Report 7510494-0 (Version None)
Quarter: 2011Q2

REPORT INFORMATION
  Report Type: 
  Country: None (occurrence: None)
  Receive Date: 20110529
  Receipt Date: 20110524
  Transmission Date: 20111010
  Serious: Yes (Hospitalization)
  Sender: FDA-Public Use
  Company Number: US-BRISTOL-MYERS SQUIBB COMPANY-15280373

PATIENT
  Age: 78 Year
  Sex: Female
  Weight: 54 kg

DRUGS (1)
  1. SPRYCEL [Suspect]
     Indication: OVARIAN EPITHELIAL CANCER
     Route: 048
     Dates: start: 20100802, end: 20100816

REACTIONS (5)
  - HYPERGLYCAEMIA [None]
  - MYOCARDITIS [None]
  - ANAEMIA [None]
  - DYSPNOEA [None]
  - LYMPHOCYTE COUNT DECREASED [None]
